FAERS Safety Report 10174718 (Version 2)
Quarter: 2014Q2

REPORT INFORMATION
  Report Type: Spontaneous
  Country: US (occurrence: US)
  Receive Date: 20140515
  Receipt Date: 20140521
  Transmission Date: 20141212
  Serious: Yes (Death)
  Sender: FDA-Public Use
  Company Number: US-PFIZER INC-2014131698

PATIENT
  Age: 40 Year
  Sex: Female

DRUGS (5)
  1. XANAX [Suspect]
     Indication: ANXIETY
     Dosage: UNK
     Route: 048
  2. XANAX [Suspect]
     Indication: INSOMNIA
  3. MORPHINE SULFATE [Suspect]
     Indication: BACK PAIN
     Dosage: UNK
     Route: 048
     Dates: start: 20100908
  4. NORCO [Suspect]
     Indication: BACK PAIN
     Dosage: UNK
     Route: 048
  5. SOMA [Suspect]
     Indication: BACK PAIN
     Dosage: UNK
     Route: 048

REACTIONS (2)
  - Toxicity to various agents [Fatal]
  - Drug screen negative [Unknown]
